FAERS Safety Report 7461622-7 (Version None)
Quarter: 2011Q2

REPORT INFORMATION
  Report Type: 
  Country: None (occurrence: None)
  Receive Date: 20110427
  Receipt Date: 20110422
  Transmission Date: 20111010
  Serious: Yes (Hospitalization)
  Sender: FDA-Public Use
  Company Number: ZYD-11-AE-080

PATIENT
  Age: 82 Year
  Sex: Male

DRUGS (23)
  1. QUININE SULFATE [Concomitant]
  2. UROXATRAL [Concomitant]
  3. PAIN PUMP (UNSPECIFIED MEDICATION) [Concomitant]
  4. PLAVIX [Concomitant]
  5. LOMOTIL [Concomitant]
  6. RENAL SOFTGEL [Concomitant]
  7. OMEGA FISH OIL [Concomitant]
  8. GLUCOSAMINE SULFATE [Concomitant]
  9. COZAAR [Concomitant]
  10. ASPIRIN [Concomitant]
  11. SODIUM BICARBONATE [Concomitant]
  12. PREDNISONE [Concomitant]
  13. NEXIUM [Concomitant]
  14. CLONAZEPAM [Concomitant]
  15. BISOPROLOL FUMARATE [Concomitant]
  16. IMURAN [Concomitant]
  17. ZOCOR [Concomitant]
  18. VITAMIN C [Concomitant]
  19. FLEXERIL [Concomitant]
  20. AZATHIOPRINE [Suspect]
     Indication: MYASTHENIA GRAVIS
     Dosage: 50MG-DAILY-ORAL
     Route: 048
     Dates: start: 20110101
  21. MESTINON [Concomitant]
  22. VITAMIN D [Concomitant]
  23. MULTI-VITAMIN [Concomitant]

REACTIONS (5)
  - BEDRIDDEN [None]
  - CHILLS [None]
  - FEELING COLD [None]
  - PARALYSIS [None]
  - ILL-DEFINED DISORDER [None]
